FAERS Safety Report 16180663 (Version 1)
Quarter: 2019Q2

REPORT INFORMATION
  Report Type: Spontaneous
  Country: US (occurrence: US)
  Receive Date: 20190410
  Receipt Date: 20190410
  Transmission Date: 20190711
  Serious: No
  Sender: FDA-Public Use
  Company Number: US-DSJP-DSU-2019-109116

PATIENT

DRUGS (3)
  1. OLMESARTAN AG [Suspect]
     Active Substance: OLMESARTAN MEDOXOMIL
     Indication: HYPERTENSION
     Dosage: 40 MG, QD, 1 TAB
     Route: 048
  2. LOSARTAN. [Suspect]
     Active Substance: LOSARTAN
     Indication: HYPERTENSION
     Dosage: 40 MG,QD, ONE TABLET A DAY
     Route: 048
     Dates: start: 201903
  3. BENICAR [Suspect]
     Active Substance: OLMESARTAN MEDOXOMIL
     Indication: HYPERTENSION
     Dosage: 40 MG, 1 TABLET A DAY, QD
     Route: 048

REACTIONS (4)
  - Drug ineffective [Unknown]
  - Dizziness [Unknown]
  - Blood pressure increased [Unknown]
  - Headache [Unknown]
